FAERS Safety Report 6726462-2 (Version None)
Quarter: 2010Q2

REPORT INFORMATION
  Report Type: 
  Country: None (occurrence: None)
  Receive Date: 20100514
  Receipt Date: 20100511
  Transmission Date: 20101027
  Serious: Yes (Death, Hospitalization)
  Sender: FDA-Public Use
  Company Number: PHHY2010US23773

PATIENT
  Sex: Male
  Weight: 84.21 kg

DRUGS (1)
  1. EXJADE [Suspect]
     Indication: MYELODYSPLASTIC SYNDROME
     Dosage: 500 MG, QID
     Route: 048
     Dates: start: 20070919

REACTIONS (2)
  - DEATH [None]
  - INFECTION [None]
